FAERS Safety Report 11986422 (Version 1)
Quarter: 2016Q1

REPORT INFORMATION
  Report Type: Spontaneous
  Country: US (occurrence: US)
  Receive Date: 20160202
  Receipt Date: 20160202
  Transmission Date: 20160526
  Serious: Yes (Hospitalization)
  Sender: FDA-Public Use
  Company Number: US-UCBSA-2014021721

PATIENT
  Age: 50 Year
  Sex: Male
  Weight: 72 kg

DRUGS (2)
  1. KEPPRA [Suspect]
     Active Substance: LEVETIRACETAM
     Indication: SEIZURE
     Dosage: 500 MG, 2X/DAY (BID)
     Route: 048
     Dates: start: 201309, end: 2014
  2. KEPPRA [Suspect]
     Active Substance: LEVETIRACETAM
     Dosage: TITRATED DOWN AND DISCONTINUED
     Route: 048
     Dates: start: 2014, end: 2014

REACTIONS (3)
  - Vomiting [Recovered/Resolved]
  - Nausea [Recovering/Resolving]
  - Seizure [Recovered/Resolved]

NARRATIVE: CASE EVENT DATE: 20141202
